FAERS Safety Report 7577874-9 (Version None)
Quarter: 2011Q2

REPORT INFORMATION
  Report Type: 
  Country: None (occurrence: None)
  Receive Date: 20110628
  Receipt Date: 20110616
  Transmission Date: 20111010
  Serious: Yes (Other)
  Sender: FDA-Public Use
  Company Number: PHFR2011GB01270

PATIENT
  Sex: Male

DRUGS (1)
  1. TEGRETOL [Suspect]
     Dosage: 600 MG MANE, 200 MG LUNCHTIME, 600 MG NOCTE
     Route: 048
     Dates: start: 19960101

REACTIONS (4)
  - CONVULSION [None]
  - ROAD TRAFFIC ACCIDENT [None]
  - HYPERTENSION [None]
  - WEIGHT INCREASED [None]
